FAERS Safety Report 22324906 (Version 1)
Quarter: 2023Q2

REPORT INFORMATION
  Report Type: Spontaneous
  Country: GB (occurrence: GB)
  Receive Date: 20230516
  Receipt Date: 20230516
  Transmission Date: 20230722
  Serious: Yes (Other)
  Sender: FDA-Public Use
  Company Number: None

PATIENT
  Age: 12 Year
  Sex: Male

DRUGS (1)
  1. CLINDAMYCIN HYDROCHLORIDE [Suspect]
     Active Substance: CLINDAMYCIN HYDROCHLORIDE
     Indication: Osteomyelitis
     Dosage: ADDITIONAL INFO: SUSPENSION
     Route: 065

REACTIONS (12)
  - Decreased appetite [Unknown]
  - Dairy intolerance [Unknown]
  - Oesophageal pain [Unknown]
  - Affective disorder [Unknown]
  - Abdominal pain upper [Unknown]
  - Eating disorder [Unknown]
  - Pain [Unknown]
  - Depression [Unknown]
  - Intentional self-injury [Unknown]
  - Suicidal ideation [Unknown]
  - Condition aggravated [Unknown]
  - Vomiting [Unknown]
